FAERS Safety Report 9617505 (Version 1)
Quarter: 2013Q4

REPORT INFORMATION
  Report Type: Spontaneous
  Country: US (occurrence: US)
  Receive Date: 20131011
  Receipt Date: 20131011
  Transmission Date: 20140711
  Serious: Yes (Hospitalization)
  Sender: FDA-Public Use
  Company Number: US-GLAXOSMITHKLINE-A1045066A

PATIENT
  Age: 75 Year
  Sex: Male

DRUGS (1)
  1. AVODART [Suspect]
     Indication: PROSTATIC DISORDER
     Dosage: .5MG UNKNOWN
     Route: 065
     Dates: start: 20121004

REACTIONS (2)
  - Prostatic disorder [Unknown]
  - Malaise [Unknown]
